FAERS Safety Report 7680792-9 (Version None)
Quarter: 2011Q3

REPORT INFORMATION
  Report Type: 
  Country: None (occurrence: None)
  Receive Date: 20110812
  Receipt Date: 20110808
  Transmission Date: 20111222
  Serious: Yes (Disabling)
  Sender: FDA-Public Use
  Company Number: US-MERCK-95111655

PATIENT
  Age: 54 Year
  Sex: Female

DRUGS (3)
  1. FOSAMAX [Suspect]
     Indication: OSTEOPOROSIS
     Route: 048
     Dates: start: 19951113, end: 20080301
  2. SYNTHROID [Concomitant]
     Route: 065
  3. TENORMIN [Concomitant]
     Route: 065

REACTIONS (3)
  - FEMUR FRACTURE [None]
  - URINARY INCONTINENCE [None]
  - BREAST TENDERNESS [None]
